FAERS Safety Report 5743913-0 (Version None)
Quarter: 2008Q2

REPORT INFORMATION
  Report Type: 
  Country: None (occurrence: None)
  Receive Date: 20080520
  Receipt Date: 20080508
  Transmission Date: 20081010
  Serious: Yes (Hospitalization)
  Sender: FDA-Public Use
  Company Number: FR-JNJFOC-20080405665

PATIENT
  Age: 63 Year
  Sex: Male

DRUGS (4)
  1. OFLOCET [Suspect]
     Route: 048
  2. OFLOCET [Suspect]
     Indication: ENDOCARDITIS
     Route: 048
  3. ORBENINE [Concomitant]
     Indication: ENDOCARDITIS
  4. DALACINE [Concomitant]
     Indication: ENDOCARDITIS

REACTIONS (1)
  - VASCULAR PURPURA [None]
